FAERS Safety Report 7397171-4 (Version None)
Quarter: 2011Q2

REPORT INFORMATION
  Report Type: 
  Country: None (occurrence: None)
  Receive Date: 20110406
  Receipt Date: 20110331
  Transmission Date: 20111010
  Serious: Yes (Disabling)
  Sender: FDA-Public Use
  Company Number: B0710777A

PATIENT
  Sex: Male
  Weight: 62 kg

DRUGS (5)
  1. CARBOPLATIN [Suspect]
     Indication: STEM CELL TRANSPLANT
     Dosage: 320MGM2 PER DAY
     Route: 042
     Dates: start: 20090116, end: 20090118
  2. BETAMETHASONE [Concomitant]
     Dosage: 8MG PER DAY
     Route: 042
     Dates: start: 20090119, end: 20090120
  3. ALKERAN [Suspect]
     Indication: STEM CELL TRANSPLANT
     Dosage: 54MGM2 PER DAY
     Route: 042
     Dates: start: 20090119, end: 20090120
  4. VEPESID [Suspect]
     Indication: STEM CELL TRANSPLANT
     Dosage: 250MGM2 PER DAY
     Route: 042
     Dates: start: 20090116, end: 20090118
  5. KYTRIL [Concomitant]
     Dosage: 6MG PER DAY
     Route: 042
     Dates: start: 20090119, end: 20090120

REACTIONS (3)
  - C-REACTIVE PROTEIN INCREASED [None]
  - ALANINE AMINOTRANSFERASE INCREASED [None]
  - BLOOD BILIRUBIN INCREASED [None]
